FAERS Safety Report 4821181-1 (Version None)
Quarter: 2005Q4

REPORT INFORMATION
  Report Type: 
  Country: None (occurrence: None)
  Receive Date: 20051102
  Receipt Date: 20051017
  Transmission Date: 20060501
  Serious: Yes (Other)
  Sender: FDA-Public Use
  Company Number: USA0510111120

PATIENT
  Age: 8 Year
  Sex: 0

DRUGS (1)
  1. STRATTERA [Suspect]
     Dosage: 18 MG
     Dates: start: 20030401, end: 20050101

REACTIONS (3)
  - APATHY [None]
  - RHABDOMYOLYSIS [None]
  - TEARFULNESS [None]
